FAERS Safety Report 6048975-1 (Version None)
Quarter: 2009Q1

REPORT INFORMATION
  Report Type: 
  Country: None (occurrence: None)
  Receive Date: 20090123
  Receipt Date: 20090116
  Transmission Date: 20090719
  Serious: Yes (Death, Hospitalization)
  Sender: FDA-Public Use
  Company Number: A0764888A

PATIENT
  Age: 56 Year
  Sex: Male
  Weight: 105.9 kg

DRUGS (17)
  1. ADVAIR DISKUS 100/50 [Suspect]
     Indication: DRUG USE FOR UNKNOWN INDICATION
     Route: 055
  2. SEREVENT [Suspect]
     Indication: DRUG USE FOR UNKNOWN INDICATION
     Route: 055
  3. PREDNISONE [Concomitant]
  4. ZANTAC [Concomitant]
  5. TRIAMTERENE AND HYDROCHLOROTHIAZIDE [Concomitant]
  6. CARDIZEM [Concomitant]
  7. PLAVIX [Concomitant]
  8. ALBUTEROL [Concomitant]
  9. SINGULAIR [Concomitant]
  10. LASIX [Concomitant]
  11. PROPAFENONE HCL [Concomitant]
  12. CITALOPRAM HYDROBROMIDE [Concomitant]
  13. NORVASC [Concomitant]
  14. VERAPAMIL [Concomitant]
  15. SPIRIVA [Concomitant]
  16. AZMACORT [Concomitant]
  17. LISINOPRIL [Concomitant]

REACTIONS (4)
  - ASTHMA [None]
  - CHRONIC OBSTRUCTIVE PULMONARY DISEASE [None]
  - PNEUMONIA [None]
  - RESPIRATORY FAILURE [None]
